FAERS Safety Report 9435083 (Version 2)
Quarter: 2014Q1

REPORT INFORMATION
  Report Type: Spontaneous
  Country: US (occurrence: US)
  Receive Date: 20130801
  Receipt Date: 20140207
  Transmission Date: 20141002
  Serious: Yes (Hospitalization, Other)
  Sender: FDA-Public Use
  Company Number: US-BAYER-2013-092814

PATIENT
  Age: 26 Year
  Sex: Female
  Weight: 113.38 kg

DRUGS (1)
  1. MIRENA [Suspect]
     Indication: CONTRACEPTION
     Dosage: 20 MCG/24HR, CONT
     Route: 015
     Dates: start: 201206, end: 20130215

REACTIONS (5)
  - Injury [None]
  - Pain [None]
  - Device dislocation [None]
  - Device issue [None]
  - Vaginal haemorrhage [None]
